FAERS Safety Report 20832822 (Version 3)
Quarter: 2022Q3

REPORT INFORMATION
  Report Type: Report from Study
  Country: GB (occurrence: GB)
  Receive Date: 20220516
  Receipt Date: 20220707
  Transmission Date: 20221026
  Serious: Yes (Other)
  Sender: FDA-Public Use
  Company Number: GB-KOREA IPSEN Pharma-2022-13346

PATIENT
  Age: 37 Year
  Sex: Female

DRUGS (1)
  1. LANREOTIDE ACETATE [Suspect]
     Active Substance: LANREOTIDE ACETATE
     Indication: Neuroendocrine tumour
     Dosage: 120MG/0.5ML EVERY 4 WEEKS
     Route: 058

REACTIONS (8)
  - Gastrointestinal disorder [Unknown]
  - Carcinoid heart disease [Unknown]
  - Hepatic neoplasm [Unknown]
  - Carcinoid tumour of the mesentery [Unknown]
  - Nausea [Unknown]
  - Fatigue [Unknown]
  - Abdominal distension [Unknown]
  - Dry skin [Unknown]

NARRATIVE: CASE EVENT DATE: 20220511
